FAERS Safety Report 20096510 (Version 1)
Quarter: 2021Q4

REPORT INFORMATION
  Report Type: Spontaneous
  Country: RU (occurrence: RU)
  Receive Date: 20211122
  Receipt Date: 20211122
  Transmission Date: 20220303
  Serious: Yes (Other)
  Sender: FDA-Public Use
  Company Number: RU-ABBVIE-21K-251-4168502-00

PATIENT
  Age: 8 Year
  Sex: Male
  Weight: 29 kg

DRUGS (1)
  1. VALPROIC ACID [Suspect]
     Active Substance: VALPROIC ACID
     Indication: Epilepsy
     Dosage: LOT NO:000012
     Route: 048
     Dates: start: 20200116, end: 20200304

REACTIONS (5)
  - Memory impairment [Recovering/Resolving]
  - Somnolence [Recovering/Resolving]
  - Disturbance in attention [Recovering/Resolving]
  - Lethargy [Recovering/Resolving]
  - Disturbance in attention [Recovering/Resolving]

NARRATIVE: CASE EVENT DATE: 20200304
